FAERS Safety Report 20635991 (Version 1)
Quarter: 2022Q1

REPORT INFORMATION
  Report Type: Spontaneous
  Country: AU (occurrence: AU)
  Receive Date: 20220325
  Receipt Date: 20220325
  Transmission Date: 20220423
  Serious: Yes (Other)
  Sender: FDA-Public Use
  Company Number: AU-BoehringerIngelheim-2022-BI-161400

PATIENT
  Sex: Female

DRUGS (1)
  1. SPIRIVA [Suspect]
     Active Substance: TIOTROPIUM BROMIDE MONOHYDRATE
     Indication: Product used for unknown indication

REACTIONS (6)
  - Cardiac flutter [Unknown]
  - Rhinorrhoea [Unknown]
  - Headache [Unknown]
  - Anosmia [Unknown]
  - Anxiety [Unknown]
  - Hypersensitivity [Unknown]
